FAERS Safety Report 23137815 (Version 1)
Quarter: 2023Q4

REPORT INFORMATION
  Report Type: Spontaneous
  Country: US (occurrence: None)
  Receive Date: 20231031
  Receipt Date: 20231031
  Transmission Date: 20240109
  Serious: No
  Sender: FDA-Public Use
  Company Number: None

PATIENT
  Age: 50 Year
  Sex: Female

DRUGS (1)
  1. HUMIRA [Suspect]
     Active Substance: ADALIMUMAB
     Indication: Hidradenitis
     Dosage: OTHER FREQUENCY : Q2 WKS. START D29;?
     Route: 058
     Dates: start: 202308

REACTIONS (2)
  - Gastroenteritis viral [None]
  - Therapy interrupted [None]
